FAERS Safety Report 7115608-2 (Version None)
Quarter: 2010Q4

REPORT INFORMATION
  Report Type: 
  Country: None (occurrence: None)
  Receive Date: 20101122
  Receipt Date: 20101109
  Transmission Date: 20110411
  Serious: Yes (Hospitalization)
  Sender: FDA-Public Use
  Company Number: US-ELI_LILLY_AND_COMPANY-US201011002904

PATIENT
  Age: 49 Year
  Sex: Female

DRUGS (11)
  1. CYMBALTA [Suspect]
     Indication: DEPRESSION
     Dosage: 60 MG, DAILY (1/D)
     Dates: end: 20100801
  2. CYMBALTA [Suspect]
     Dosage: UNK, UNKNOWN
     Dates: start: 20101101
  3. NORCO [Concomitant]
  4. PREDNISONE [Concomitant]
  5. METFORMIN [Concomitant]
  6. TOPIRAMATE [Concomitant]
  7. AMBIEN [Concomitant]
  8. METOPROLOL TARTRATE [Concomitant]
  9. TERAZOSIN HCL [Concomitant]
  10. AMLODIPINE [Concomitant]
  11. OXYCONTIN [Concomitant]

REACTIONS (15)
  - AFFECT LABILITY [None]
  - AGITATION [None]
  - ANGER [None]
  - ANXIETY [None]
  - CONFUSIONAL STATE [None]
  - DELUSION [None]
  - DIZZINESS [None]
  - DYSPHORIA [None]
  - HEADACHE [None]
  - INSOMNIA [None]
  - IRRITABILITY [None]
  - LETHARGY [None]
  - PARAESTHESIA [None]
  - SENSORY DISTURBANCE [None]
  - WITHDRAWAL SYNDROME [None]
